FAERS Safety Report 5593213-7 (Version None)
Quarter: 2008Q1

REPORT INFORMATION
  Report Type: 
  Country: None (occurrence: None)
  Receive Date: 20080116
  Receipt Date: 20080107
  Transmission Date: 20080703
  Serious: Yes (Other)
  Sender: FDA-Public Use
  Company Number: US-SOLVAY-00208000092

PATIENT
  Age: 61 Year
  Sex: Male
  Weight: 138.5 kg

DRUGS (12)
  1. ASPIRIN [Concomitant]
     Indication: CARDIAC DISORDER
     Dosage: DAILY DOSE: 81 MILLIGRAM(S)
     Route: 048
  2. ANDROGEL [Suspect]
     Indication: BLOOD TESTOSTERONE DECREASED
     Dosage: DAILY DOSE:  UNKNOWN; 5 G VIA PUMP, IRREGULARLY
     Route: 062
     Dates: start: 20060901, end: 20060101
  3. ANDROGEL [Suspect]
     Dosage: DAILY DOSE:  UNKNOWN; 5 G VIA PUMP, IRREGULARLY
     Route: 062
     Dates: start: 20071001
  4. LEVOXYL [Concomitant]
     Indication: THYROID DISORDER
     Dosage: DAILY DOSE: .2 MILLIGRAM(S)
     Route: 048
  5. PREVACID [Concomitant]
     Indication: ILL-DEFINED DISORDER
     Dosage: DAILY DOSE:  AS NEEDED
     Route: 048
  6. RENAGEL [Concomitant]
     Indication: BLOOD PHOSPHORUS INCREASED
     Dosage: DAILY DOSE:  UNKNOWN
     Route: 048
  7. ALLOPURINOL [Concomitant]
     Indication: BLOOD URIC ACID INCREASED
     Dosage: DAILY DOSE: 200 MILLIGRAM(S)
     Route: 048
  8. COREG [Concomitant]
     Indication: HYPERTENSION
     Dosage: DAILY DOSE: 25 MILLIGRAM(S)
     Route: 048
     Dates: start: 20050101
  9. ALTACE [Concomitant]
     Indication: HYPERTENSION
     Dosage: DAILY DOSE: 10 MILLIGRAM(S)
     Route: 048
  10. KLONOPIN [Concomitant]
     Indication: ANXIETY
     Dosage: DAILY DOSE: 1 MILLIGRAM(S)
     Route: 048
  11. AMBIEN [Concomitant]
     Indication: ANXIETY
     Dosage: DAILY DOSE:  AS NEEDED
     Route: 048
  12. ADVIL LIQUI-GELS [Concomitant]
     Indication: ANXIETY
     Dosage: DAILY DOSE:  AS NEEDED
     Route: 048

REACTIONS (2)
  - ATRIAL FIBRILLATION [None]
  - ATRIAL FLUTTER [None]
